FAERS Safety Report 9179849 (Version 1)
Quarter: 2012Q4

REPORT INFORMATION
  Report Type: 
  Country: US (occurrence: US)
  Receive Date: 20121029
  Receipt Date: 20121029
  Transmission Date: 20130627
  Serious: Yes (Hospitalization)
  Sender: FDA-Public Use
  Company Number: US-JNJFOC-20121012760

PATIENT
  Age: 64 Year
  Sex: Male

DRUGS (11)
  1. XARELTO [Suspect]
     Indication: CEREBROVASCULAR ACCIDENT PROPHYLAXIS
     Route: 048
     Dates: start: 20121006, end: 20121016
  2. XARELTO [Suspect]
     Indication: ATRIAL FIBRILLATION
     Route: 048
     Dates: start: 20121006, end: 20121016
  3. COUMADIN [Concomitant]
  4. ADVAIR [Concomitant]
  5. NTG PATCH [Concomitant]
  6. ATENOLOL [Concomitant]
  7. CARVEDILOL [Concomitant]
  8. POTASSIUM CHLORIDE [Concomitant]
  9. OXYCONTIN [Concomitant]
  10. PERCOCET [Concomitant]
  11. ALL OTHER MEDICATIONS [Concomitant]

REACTIONS (3)
  - Gastrointestinal haemorrhage [Recovered/Resolved]
  - Medication error [Unknown]
  - Faeces discoloured [Unknown]
